FAERS Safety Report 5525200-9 (Version None)
Quarter: 2007Q4

REPORT INFORMATION
  Report Type: 
  Country: None (occurrence: None)
  Receive Date: 20071126
  Receipt Date: 20071119
  Transmission Date: 20080405
  Serious: Yes (Other)
  Sender: FDA-Public Use
  Company Number: US-ALLERGAN-0711610US

PATIENT
  Sex: Female
  Weight: 52 kg

DRUGS (2)
  1. BOTOX [Suspect]
     Indication: TORTICOLLIS
     Dosage: 350 UNITS, SINGLE
     Route: 030
     Dates: start: 20070912, end: 20070912
  2. KLONOPIN [Concomitant]
     Indication: TORTICOLLIS
     Dosage: 0.5 MG, UNK
     Route: 065

REACTIONS (4)
  - BURNING SENSATION [None]
  - INFLUENZA LIKE ILLNESS [None]
  - MUSCULAR WEAKNESS [None]
  - NECK PAIN [None]
